FAERS Safety Report 5274809-9 (Version None)
Quarter: 2007Q1

REPORT INFORMATION
  Report Type: 
  Country: None (occurrence: None)
  Receive Date: 20070321
  Receipt Date: 20061115
  Transmission Date: 20070707
  Serious: Yes (Hospitalization, Other)
  Sender: FDA-Public Use
  Company Number: 233099K06USA

PATIENT
  Age: 55 Year
  Sex: Female

DRUGS (4)
  1. REBIF [Suspect]
     Indication: MULTIPLE SCLEROSIS
     Dosage: 44 MCG, 3 IN 1 WEEKS, SUBCUTANEOUS
     Route: 058
     Dates: start: 20050917
  2. PAIN PILL (ANALGESICS) [Concomitant]
  3. THYROID MEDICATION (THYROID THERAPY) [Concomitant]
  4. PAIN PATCH (ANALGESICS) [Concomitant]

REACTIONS (1)
  - CHEST PAIN [None]
